FAERS Safety Report 6962141-4 (Version None)
Quarter: 2010Q3

REPORT INFORMATION
  Report Type: 
  Country: None (occurrence: None)
  Receive Date: 20100902
  Receipt Date: 20100826
  Transmission Date: 20110219
  Serious: Yes (Death, Hospitalization)
  Sender: FDA-Public Use
  Company Number: US-CELGENEUS-163-21880-10071607

PATIENT
  Sex: Male

DRUGS (1)
  1. REVLIMID [Suspect]
     Indication: MULTIPLE MYELOMA
     Route: 048
     Dates: start: 20100119, end: 20100101

REACTIONS (5)
  - ANAEMIA [None]
  - ASTHENIA [None]
  - DEATH [None]
  - DEHYDRATION [None]
  - DIARRHOEA [None]
